FAERS Safety Report 7797096-6 (Version None)
Quarter: 2011Q4

REPORT INFORMATION
  Report Type: 
  Country: None (occurrence: None)
  Receive Date: 20111003
  Receipt Date: 20110919
  Transmission Date: 20120403
  Serious: Yes (Other)
  Sender: FDA-Public Use
  Company Number: JP-ACCORD-010716

PATIENT

DRUGS (2)
  1. TACROLIMUS [Suspect]
     Indication: PRODUCT USED FOR UNKNOWN INDICATION
  2. SORAFENIB (SORAFENIB) [Suspect]
     Indication: HEPATIC NEOPLASM MALIGNANT RECURRENT

REACTIONS (2)
  - DRUG INTERACTION [None]
  - DRUG TOLERANCE DECREASED [None]
